FAERS Safety Report 15505195 (Version 1)
Quarter: 2018Q4

REPORT INFORMATION
  Report Type: Spontaneous
  Country: US (occurrence: US)
  Receive Date: 20181010
  Receipt Date: 20181010
  Transmission Date: 20190205
  Serious: No
  Sender: FDA-Public Use
  Company Number: None

PATIENT
  Age: 4 Year
  Sex: Female

DRUGS (1)
  1. ZOMACTON [Suspect]
     Active Substance: SOMATROPIN
     Dates: start: 20180914

REACTIONS (3)
  - Aggression [None]
  - Eczema [None]
  - Therapy cessation [None]

NARRATIVE: CASE EVENT DATE: 20181006
